FAERS Safety Report 10028516 (Version 12)
Quarter: 2015Q3

REPORT INFORMATION
  Report Type: Spontaneous
  Country: US (occurrence: US)
  Receive Date: 20140321
  Receipt Date: 20150928
  Transmission Date: 20151125
  Serious: Yes (Other)
  Sender: FDA-Public Use
  Company Number: US-SANOFI-AVENTIS-2012SA037868

PATIENT
  Age: 45 Year
  Sex: Female
  Weight: 59.87 kg

DRUGS (43)
  1. MORPHINE [Concomitant]
     Active Substance: MORPHINE
  2. ALBUTEROL. [Concomitant]
     Active Substance: ALBUTEROL
  3. DESYREL [Concomitant]
     Active Substance: TRAZODONE HYDROCHLORIDE
     Route: 048
     Dates: start: 20090414
  4. COGENTIN [Concomitant]
     Active Substance: BENZTROPINE MESYLATE
     Route: 048
     Dates: start: 20090414
  5. PREDNISONE. [Concomitant]
     Active Substance: PREDNISONE
  6. AMLODIPINE [Concomitant]
     Active Substance: AMLODIPINE BESYLATE
  7. DICYCLOMINE [Concomitant]
     Active Substance: DICYCLOMINE HYDROCHLORIDE
  8. XANAX [Concomitant]
     Active Substance: ALPRAZOLAM
     Dosage: 1 TO 2 TABLET TID
  9. HALDOL [Concomitant]
     Active Substance: HALOPERIDOL
     Route: 048
     Dates: start: 20090414
  10. METOPROLOL [Concomitant]
     Active Substance: METOPROLOL
  11. HYDROCODONE BITARTRATE AND ACETAMINOPHEN [Concomitant]
     Active Substance: ACETAMINOPHEN\HYDROCODONE BITARTRATE
  12. KETOROLAC [Concomitant]
     Active Substance: KETOROLAC\KETOROLAC TROMETHAMINE
  13. ACETAMINOPHEN. [Concomitant]
     Active Substance: ACETAMINOPHEN
  14. HABITROL [Concomitant]
     Active Substance: NICOTINE
  15. DEPAKOTE [Concomitant]
     Active Substance: DIVALPROEX SODIUM
  16. ALPRAZOLAM. [Concomitant]
     Active Substance: ALPRAZOLAM
  17. FERROUS SULFATE [Concomitant]
     Active Substance: FERROUS SULFATE\FERROUS SULFATE, DRIED
  18. LORAZEPAM. [Concomitant]
     Active Substance: LORAZEPAM
  19. NORVASC [Concomitant]
     Active Substance: AMLODIPINE BESYLATE
  20. PAXIL [Concomitant]
     Active Substance: PAROXETINE HYDROCHLORIDE
  21. ADVAIR DISKUS [Concomitant]
     Active Substance: FLUTICASONE PROPIONATE\SALMETEROL XINAFOATE
     Dosage: DOSE: 250 MG/50 MG
     Dates: start: 20090414
  22. VENTOLINE [Concomitant]
     Active Substance: ALBUTEROL
     Route: 055
     Dates: start: 20090414
  23. BENADRYL [Concomitant]
     Active Substance: DIPHENHYDRAMINE HYDROCHLORIDE
  24. DILAUDID [Concomitant]
     Active Substance: HYDROMORPHONE HYDROCHLORIDE
  25. PAXIL [Concomitant]
     Active Substance: PAROXETINE HYDROCHLORIDE
     Dates: start: 20090414
  26. POTASSIUM CHLORIDE. [Concomitant]
     Active Substance: POTASSIUM CHLORIDE
     Route: 048
     Dates: start: 20090414
  27. DIPHENHYDRAMINE. [Concomitant]
     Active Substance: DIPHENHYDRAMINE
  28. ONDANSETRON [Concomitant]
     Active Substance: ONDANSETRON
  29. IPRATROPIUM [Concomitant]
     Active Substance: IPRATROPIUM
  30. BISACODYL. [Concomitant]
     Active Substance: BISACODYL
  31. LISINOPRIL. [Concomitant]
     Active Substance: LISINOPRIL
  32. LOSARTAN. [Concomitant]
     Active Substance: LOSARTAN
  33. MAALOX ANTACID [Concomitant]
     Active Substance: ALUMINUM HYDROXIDE\DIMETHICONE\MAGNESIUM HYDROXIDE
     Route: 048
     Dates: start: 20090414
  34. DEPAKOTE [Concomitant]
     Active Substance: DIVALPROEX SODIUM
  35. PANTOPRAZOLE [Concomitant]
     Active Substance: PANTOPRAZOLE SODIUM
  36. CLINDAMYCIN [Concomitant]
     Active Substance: CLINDAMYCIN\CLINDAMYCIN PHOSPHATE
  37. PLAVIX [Suspect]
     Active Substance: CLOPIDOGREL BISULFATE
     Indication: TRANSIENT ISCHAEMIC ATTACK
     Route: 048
     Dates: start: 20080301, end: 20101231
  38. ZANTAC [Concomitant]
     Active Substance: RANITIDINE HYDROCHLORIDE
  39. AZTREONAM. [Concomitant]
     Active Substance: AZTREONAM
  40. HABITROL [Concomitant]
     Active Substance: NICOTINE
     Dates: start: 20090414, end: 20090525
  41. HYDROCHLOROTHIAZIDE. [Concomitant]
     Active Substance: HYDROCHLOROTHIAZIDE
     Route: 048
     Dates: start: 20090414
  42. ATIVAN [Concomitant]
     Active Substance: LORAZEPAM
     Route: 048
     Dates: start: 20090414
  43. MILK OF MAGNESIA [Concomitant]
     Active Substance: MAGNESIUM HYDROXIDE
     Route: 048
     Dates: start: 20090414

REACTIONS (13)
  - Dyspnoea [Unknown]
  - Suicidal ideation [Unknown]
  - Nausea [Unknown]
  - Muscle spasms [Unknown]
  - Multiple injuries [Unknown]
  - Depression [Unknown]
  - Gastrointestinal haemorrhage [Unknown]
  - Back pain [Unknown]
  - Asthenia [Unknown]
  - Headache [Unknown]
  - Menorrhagia [Unknown]
  - Ulcer haemorrhage [Unknown]
  - Vomiting [Unknown]

NARRATIVE: CASE EVENT DATE: 20100601
